FAERS Safety Report 16103791 (Version 2)
Quarter: 2019Q1

REPORT INFORMATION
  Report Type: Spontaneous
  Country: JP (occurrence: JP)
  Receive Date: 20190322
  Receipt Date: 20190325
  Transmission Date: 20190418
  Serious: Yes (Death)
  Sender: FDA-Public Use
  Company Number: JP-009507513-1903JPN008882

PATIENT
  Age: 47 Year
  Sex: Male
  Weight: 77 kg

DRUGS (23)
  1. FIRSTCIN [Suspect]
     Active Substance: CEFOZOPRAN HYDROCHLORIDE
     Indication: PYREXIA
  2. ISCOTIN [Suspect]
     Active Substance: ISONIAZID
     Indication: INFECTION
     Dosage: 400MG PER DAY
     Route: 048
     Dates: start: 19961025, end: 19970102
  3. SULFAMETHOXAZOLE (+) TRIMETHOPRIM [Suspect]
     Active Substance: SULFAMETHOXAZOLE\TRIMETHOPRIM
     Indication: INFECTION
     Dosage: 400MG PER DAY
     Route: 048
     Dates: start: 19961025, end: 19961231
  4. VOLTAREN [Suspect]
     Active Substance: DICLOFENAC SODIUM
     Indication: PYREXIA
     Dosage: 25MG PER DAY
     Route: 048
     Dates: start: 19961206, end: 19961209
  5. CLINDAMYCIN. [Suspect]
     Active Substance: CLINDAMYCIN
     Indication: INFECTION
     Dosage: 1.2 GRAM, QD
     Route: 041
     Dates: start: 19961121, end: 19961126
  6. ETOPOSIDE. [Concomitant]
     Active Substance: ETOPOSIDE
     Indication: CHEMOTHERAPY
     Dosage: UNK
  7. RANIMUSTINE [Concomitant]
     Active Substance: RANIMUSTINE
     Indication: CHEMOTHERAPY
     Dosage: UNK
     Dates: start: 19961028
  8. IMIPENEM AND CILASTATIN [Suspect]
     Active Substance: CILASTATIN SODIUM\IMIPENEM
     Indication: INFECTION
     Dosage: DAILY DOSE: 2GRAM
     Route: 041
     Dates: start: 19961121, end: 19961126
  9. NAIXAN [Suspect]
     Active Substance: NAPROXEN SODIUM
     Indication: SEDATION
     Dosage: 900MG PER DAY
     Route: 048
     Dates: start: 19961210, end: 19961214
  10. BAKTAR [Suspect]
     Active Substance: SULFAMETHOXAZOLE\TRIMETHOPRIM
     Dosage: 100 MILLIGRAM
     Route: 048
     Dates: start: 19970101, end: 19970106
  11. DAUNORUBICIN [Concomitant]
     Active Substance: DAUNORUBICIN
     Dosage: UNK
     Route: 065
     Dates: start: 19960725
  12. DALACIN [Suspect]
     Active Substance: CLINDAMYCIN
     Dosage: 1.2 GRAM
     Route: 065
     Dates: start: 19961121, end: 19961126
  13. DIFLUCAN [Suspect]
     Active Substance: FLUCONAZOLE
     Indication: INFECTION
     Dosage: 200MG PER DAY, DOSAGE FORM: TABLETS
     Route: 048
     Dates: start: 19961025, end: 19970207
  14. ACYCLOVIR. [Suspect]
     Active Substance: ACYCLOVIR
     Indication: HERPES ZOSTER
     Dosage: 250MG THREE TIMES PER DAY
     Route: 042
     Dates: start: 19970320, end: 19970326
  15. VOLTAREN [Suspect]
     Active Substance: DICLOFENAC SODIUM
     Indication: SEDATION
  16. VINCRISTINE [Concomitant]
     Active Substance: VINCRISTINE
     Dosage: UNK
     Route: 065
     Dates: start: 19960725
  17. TIENAM FOR INTRAVENOUS DRIP INFUSION 0.5G [Suspect]
     Active Substance: CILASTATIN SODIUM\IMIPENEM
     Dosage: UNK
     Route: 065
     Dates: start: 19961121, end: 19961126
  18. DICLOFENAC [Suspect]
     Active Substance: DICLOFENAC
     Indication: PRODUCT USED FOR UNKNOWN INDICATION
     Dosage: UNK
     Dates: start: 19961216, end: 19970607
  19. CYCLOPHOSPHAMIDE. [Concomitant]
     Active Substance: CYCLOPHOSPHAMIDE
     Indication: CHEMOTHERAPY
     Dosage: UNK
     Route: 065
     Dates: start: 19960725
  20. PREDNISOLONE. [Concomitant]
     Active Substance: PREDNISOLONE
     Indication: CHEMOTHERAPY
     Dosage: UNK
     Route: 065
     Dates: start: 19960725
  21. CRAVIT [Suspect]
     Active Substance: LEVOFLOXACIN
     Indication: INFECTION
     Dosage: 300MG PER DAY
     Route: 048
     Dates: start: 19961025, end: 19961221
  22. ZOVIRAX [Suspect]
     Active Substance: ACYCLOVIR
     Indication: HERPES ZOSTER
     Dosage: 200MG FIVE TIMES PER DAY
     Route: 048
     Dates: start: 19961028, end: 19970129
  23. FIRSTCIN [Suspect]
     Active Substance: CEFOZOPRAN HYDROCHLORIDE
     Indication: INFECTION
     Dosage: 2 GRAM, QD
     Route: 041
     Dates: start: 19961207, end: 19961209

REACTIONS (14)
  - Pyrexia [Unknown]
  - Toxic epidermal necrolysis [Fatal]
  - White blood cell count decreased [Fatal]
  - Aspartate aminotransferase decreased [Fatal]
  - Pneumonia pseudomonal [Fatal]
  - Toxic epidermal necrolysis [Fatal]
  - Skin exfoliation [Unknown]
  - Platelet count decreased [Fatal]
  - Rash [Not Recovered/Not Resolved]
  - Cytomegalovirus infection [Fatal]
  - Staphylococcal infection [Fatal]
  - Dermatitis exfoliative generalised [Unknown]
  - Pneumonia [Unknown]
  - Haemoglobin decreased [Fatal]

NARRATIVE: CASE EVENT DATE: 19961119
